FAERS Safety Report 7404330-0 (Version None)
Quarter: 2011Q2

REPORT INFORMATION
  Report Type: 
  Country: None (occurrence: None)
  Receive Date: 20110408
  Receipt Date: 20110331
  Transmission Date: 20111010
  Serious: Yes (Death)
  Sender: FDA-Public Use
  Company Number: US-ROCHE-768808

PATIENT
  Sex: Female
  Weight: 65.8 kg

DRUGS (9)
  1. PRILOSEC [Concomitant]
  2. ZOMETA [Concomitant]
  3. VITAMIN D [Concomitant]
  4. SYNTHROID [Concomitant]
  5. MAGNESIUM OXIDE [Concomitant]
  6. XELODA [Suspect]
     Indication: BREAST CANCER
     Dosage: TWICE DAILY FOR 7 DAYS ON AND 7 DAY OFF
     Route: 048
     Dates: start: 20100401, end: 20100701
  7. PYRIDOXINE HYDROCHLORIDE [Concomitant]
  8. VITAMIN B-12 [Concomitant]
  9. TYKERB [Suspect]
     Indication: BREAST CANCER METASTATIC
     Dosage: IN THE MORNING
     Route: 065
     Dates: start: 20100626, end: 20100808

REACTIONS (16)
  - METASTASES TO LIVER [None]
  - ASCITES [None]
  - OESOPHAGITIS [None]
  - PRODUCTIVE COUGH [None]
  - DRUG INEFFECTIVE [None]
  - ASTHENIA [None]
  - TREATMENT FAILURE [None]
  - OESOPHAGEAL DISORDER [None]
  - DYSPNOEA [None]
  - PULMONARY OEDEMA [None]
  - METASTASES TO BONE [None]
  - PLEURAL EFFUSION [None]
  - PNEUMONITIS [None]
  - DYSPNOEA EXERTIONAL [None]
  - BREAST CANCER METASTATIC [None]
  - LIVER DISORDER [None]
